FAERS Safety Report 5899472-5 (Version None)
Quarter: 2008Q3

REPORT INFORMATION
  Report Type: 
  Country: None (occurrence: None)
  Receive Date: 20080926
  Receipt Date: 20080917
  Transmission Date: 20090109
  Serious: Yes (Other)
  Sender: FDA-Public Use
  Company Number: CA-JNJFOC-20080904720

PATIENT
  Age: 5 Year
  Sex: Female
  Weight: 18.14 kg

DRUGS (2)
  1. TYLENOL (CAPLET) [Suspect]
     Indication: PYREXIA
     Route: 048
  2. TYLENOL (CAPLET) [Suspect]
     Indication: RHINORRHOEA
     Dosage: 2 TABLETS
     Route: 048

REACTIONS (5)
  - APHASIA [None]
  - HALLUCINATION [None]
  - MYDRIASIS [None]
  - STARING [None]
  - TREMOR [None]
